FAERS Safety Report 6474299-4 (Version None)
Quarter: 2009Q4

REPORT INFORMATION
  Report Type: 
  Country: None (occurrence: None)
  Receive Date: 20091204
  Receipt Date: 20091201
  Transmission Date: 20100525
  Serious: Yes (Death, Other)
  Sender: FDA-Public Use
  Company Number: PHHY2009CZ52730

PATIENT
  Age: 65 Year
  Sex: Female

DRUGS (2)
  1. EXJADE [Suspect]
     Dosage: 20 MG/KG, QD
     Route: 048
     Dates: start: 20090114
  2. EXJADE [Suspect]
     Dosage: 10 MG/KG, QD
     Route: 048
     Dates: start: 20090730, end: 20090901

REACTIONS (3)
  - DEATH [None]
  - GENERAL PHYSICAL HEALTH DETERIORATION [None]
  - RENAL IMPAIRMENT [None]
